FAERS Safety Report 9031628 (Version 13)
Quarter: 2016Q2

REPORT INFORMATION
  Report Type: Report from Study
  Country: CA (occurrence: CA)
  Receive Date: 20130124
  Receipt Date: 20160413
  Transmission Date: 20160815
  Serious: Yes (Hospitalization, Other)
  Sender: FDA-Public Use
  Company Number: CA-ROCHE-796141

PATIENT
  Age: 68 Year
  Sex: Female
  Weight: 80.7 kg

DRUGS (19)
  1. CRESTOR [Concomitant]
     Active Substance: ROSUVASTATIN CALCIUM
  2. METHOTREXATE [Concomitant]
     Active Substance: METHOTREXATE
  3. DIPHENHYDRAMINE HCL [Concomitant]
     Active Substance: DIPHENHYDRAMINE HYDROCHLORIDE
     Indication: PREMEDICATION
     Route: 048
     Dates: start: 20070508
  4. METHYLPREDNISOLONE. [Concomitant]
     Active Substance: METHYLPREDNISOLONE
     Indication: PREMEDICATION
     Route: 042
     Dates: start: 20070508
  5. METHYLPREDNISOLONE. [Concomitant]
     Active Substance: METHYLPREDNISOLONE
     Route: 042
     Dates: start: 20110728
  6. CIPRALEX [Concomitant]
     Active Substance: ESCITALOPRAM OXALATE
  7. BISOPROLOL [Concomitant]
     Active Substance: BISOPROLOL
  8. RABEPRAZOLE [Concomitant]
     Active Substance: RABEPRAZOLE
  9. RITUXAN [Suspect]
     Active Substance: RITUXIMAB
     Route: 042
  10. CELEBREX [Concomitant]
     Active Substance: CELECOXIB
  11. FOLIC ACID. [Concomitant]
     Active Substance: FOLIC ACID
  12. PREDNISONE. [Concomitant]
     Active Substance: PREDNISONE
  13. ACETAMINOPHEN. [Concomitant]
     Active Substance: ACETAMINOPHEN
     Indication: PREMEDICATION
     Route: 048
     Dates: start: 20070508
  14. BABY ASA [Concomitant]
     Active Substance: ASPIRIN
     Dosage: DRUG:BABY ASPIRIN
     Route: 065
  15. ACETAMINOPHEN. [Concomitant]
     Active Substance: ACETAMINOPHEN
     Route: 048
     Dates: start: 20100223
  16. NOVO-HYDRAZIDE [Concomitant]
     Active Substance: HYDROCHLOROTHIAZIDE
  17. COVERSYL [Concomitant]
     Active Substance: PERINDOPRIL
     Route: 065
  18. RITUXAN [Suspect]
     Active Substance: RITUXIMAB
     Indication: RHEUMATOID ARTHRITIS
     Dosage: ON 11 AUGUST 2011, DAY 15 WAS CANCELLED. LAST INFUSION WAS ON 15/AUG/2013.
     Route: 042
  19. DIPHENHYDRAMINE HCL [Concomitant]
     Active Substance: DIPHENHYDRAMINE HYDROCHLORIDE
     Route: 048
     Dates: start: 20100223

REACTIONS (17)
  - Hyperkeratosis [Recovered/Resolved]
  - Arthropathy [Recovered/Resolved]
  - Upper extremity mass [Unknown]
  - Oxygen saturation decreased [Unknown]
  - Heart rate decreased [Unknown]
  - Hip fracture [Unknown]
  - Deafness unilateral [Not Recovered/Not Resolved]
  - Pain [Not Recovered/Not Resolved]
  - Gastric cancer [Unknown]
  - Foot deformity [Recovered/Resolved]
  - Fall [Unknown]
  - Blood pressure increased [Recovering/Resolving]
  - Rheumatoid arthritis [Unknown]
  - Nodule [Not Recovered/Not Resolved]
  - Heart rate abnormal [Recovering/Resolving]
  - Hypotension [Unknown]
  - Haemoglobin decreased [Unknown]

NARRATIVE: CASE EVENT DATE: 2011
